FAERS Safety Report 6200514-8 (Version None)
Quarter: 2009Q2

REPORT INFORMATION
  Report Type: 
  Country: None (occurrence: None)
  Receive Date: 20090522
  Receipt Date: 20090511
  Transmission Date: 20091009
  Serious: Yes (Other)
  Sender: FDA-Public Use
  Company Number: GB-AMGEN-US342357

PATIENT
  Age: 54 Year
  Sex: Female

DRUGS (3)
  1. ENBREL [Suspect]
     Indication: DRUG USE FOR UNKNOWN INDICATION
     Dosage: UNKNOWN
     Route: 065
     Dates: start: 20070101
  2. HUMIRA [Suspect]
     Dosage: UNKNOWN
     Dates: start: 20080101
  3. REMICADE [Suspect]
     Indication: PSORIASIS
     Dosage: UNKNOWN
     Route: 042
     Dates: start: 20071109, end: 20080116

REACTIONS (2)
  - BREAST CANCER STAGE III [None]
  - DRUG INEFFECTIVE [None]
